FAERS Safety Report 11142919 (Version 1)
Quarter: 2015Q2

REPORT INFORMATION
  Report Type: Other
  Country: GB (occurrence: GB)
  Receive Date: 20150525
  Receipt Date: 20150525
  Transmission Date: 20150821
  Serious: Yes (Disabling, Other)
  Sender: FDA-Public Use
  Company Number: GB-MYLANLABS-2015M1015990

PATIENT

DRUGS (1)
  1. DOXYCYCLINE. [Suspect]
     Active Substance: DOXYCYCLINE
     Indication: FUNGAL INFECTION
     Dosage: 1 DF, QD
     Route: 048
     Dates: start: 20150407, end: 20150414

REACTIONS (8)
  - Fear [Recovering/Resolving]
  - Panic attack [Recovered/Resolved]
  - Depression [Recovering/Resolving]
  - Depersonalisation [Recovering/Resolving]
  - Hypoaesthesia [Recovering/Resolving]
  - Anxiety [Not Recovered/Not Resolved]
  - Asthenia [Recovering/Resolving]
  - Feelings of worthlessness [Recovering/Resolving]

NARRATIVE: CASE EVENT DATE: 20150414
